FAERS Safety Report 11111447 (Version 8)
Quarter: 2017Q1

REPORT INFORMATION
  Report Type: Report from Study
  Country: CO (occurrence: CO)
  Receive Date: 20150513
  Receipt Date: 20170321
  Transmission Date: 20170428
  Serious: Yes (Other)
  Sender: FDA-Public Use
  Company Number: PHHY2015CO055744

PATIENT
  Age: 53 Year
  Sex: Female
  Weight: 76 kg

DRUGS (2)
  1. TASIGNA [Suspect]
     Active Substance: NILOTINIB
     Dosage: 2 DF OF 200 MG, Q12H
     Route: 048
     Dates: start: 20130226
  2. TASIGNA [Suspect]
     Active Substance: NILOTINIB
     Indication: CHRONIC MYELOID LEUKAEMIA
     Dosage: 1 DF (150 MG CAPSULE), BID (1 IN THE MORNING AND 1 AT NIGHT)
     Route: 048

REACTIONS (12)
  - Pain in extremity [Unknown]
  - Pain [Unknown]
  - Platelet count increased [Unknown]
  - Breast cancer female [Unknown]
  - Laboratory test abnormal [Unknown]
  - Malaise [Unknown]
  - Chikungunya virus infection [Recovering/Resolving]
  - Discomfort [Unknown]
  - Diarrhoea [Unknown]
  - Second primary malignancy [Unknown]
  - White blood cell count increased [Unknown]
  - Inflammation [Unknown]

NARRATIVE: CASE EVENT DATE: 20170201
